FAERS Safety Report 17113698 (Version 2)
Quarter: 2020Q3

REPORT INFORMATION
  Report Type: Spontaneous
  Country: US (occurrence: US)
  Receive Date: 20191205
  Receipt Date: 20200709
  Transmission Date: 20201102
  Serious: Yes (Other)
  Sender: FDA-Public Use
  Company Number: US-ASTRAZENECA-2019SF73166

PATIENT
  Age: 54 Year
  Sex: Female
  Weight: 72.6 kg

DRUGS (50)
  1. NEXIUM [Suspect]
     Active Substance: ESOMEPRAZOLE MAGNESIUM
     Indication: GASTROOESOPHAGEAL REFLUX DISEASE
     Route: 048
     Dates: start: 2009, end: 2016
  2. NEXIUM [Suspect]
     Active Substance: ESOMEPRAZOLE MAGNESIUM
     Indication: GASTROOESOPHAGEAL REFLUX DISEASE
     Route: 048
     Dates: start: 20110603
  3. AMLODIPINE [Concomitant]
     Active Substance: AMLODIPINE BESYLATE
     Indication: HYPERTENSION
     Dates: start: 2011, end: 2016
  4. TETRACYCLINE [Concomitant]
     Active Substance: TETRACYCLINE
  5. ROPINTROLE [Concomitant]
  6. GEMFIBROZIL. [Concomitant]
     Active Substance: GEMFIBROZIL
  7. FERROUS SULFATE. [Concomitant]
     Active Substance: FERROUS SULFATE
  8. TEMAZEPAM. [Concomitant]
     Active Substance: TEMAZEPAM
  9. AZITHROMYCIN ANHYDROUS. [Concomitant]
     Active Substance: AZITHROMYCIN ANHYDROUS
  10. BACLOFEN. [Concomitant]
     Active Substance: BACLOFEN
  11. VITAMIN D [Concomitant]
     Active Substance: VITAMIN D NOS
  12. GABAPENTIN. [Concomitant]
     Active Substance: GABAPENTIN
  13. TROSPIUM [Concomitant]
     Active Substance: TROSPIUM
  14. NEXIUM [Suspect]
     Active Substance: ESOMEPRAZOLE MAGNESIUM
     Indication: GASTROOESOPHAGEAL REFLUX DISEASE
     Route: 048
     Dates: start: 20120213
  15. AMOXICILLIN. [Concomitant]
     Active Substance: AMOXICILLIN
  16. DOXYCYCLINE. [Concomitant]
     Active Substance: DOXYCYCLINE
  17. LANTUS [Concomitant]
     Active Substance: INSULIN GLARGINE
  18. MYRBETRIQ [Concomitant]
     Active Substance: MIRABEGRON
  19. CELECOXIB. [Concomitant]
     Active Substance: CELECOXIB
  20. TRAMADOL. [Concomitant]
     Active Substance: TRAMADOL
  21. CALCITROL [Concomitant]
  22. FENOFIBRATE. [Concomitant]
     Active Substance: FENOFIBRATE
  23. LEVOFLOXACIN. [Concomitant]
     Active Substance: LEVOFLOXACIN
  24. GLIPIZIDE. [Concomitant]
     Active Substance: GLIPIZIDE
     Indication: DIABETES MELLITUS
     Dates: start: 2011, end: 2016
  25. SIMVASTATIN. [Concomitant]
     Active Substance: SIMVASTATIN
     Indication: BLOOD CHOLESTEROL INCREASED
     Dates: start: 2009, end: 2016
  26. HYDROCO/APAP [Concomitant]
     Active Substance: ACETAMINOPHEN\HYDROCODONE
  27. PAROXETIN [Concomitant]
     Active Substance: PAROXETINE HYDROCHLORIDE
  28. TRIAMCINOLON [Concomitant]
  29. KETOCONAZOLE. [Concomitant]
     Active Substance: KETOCONAZOLE
  30. NEXIUM [Suspect]
     Active Substance: ESOMEPRAZOLE MAGNESIUM
     Indication: GASTROOESOPHAGEAL REFLUX DISEASE
     Route: 048
     Dates: start: 20090917
  31. NEXIUM [Suspect]
     Active Substance: ESOMEPRAZOLE MAGNESIUM
     Indication: GASTROOESOPHAGEAL REFLUX DISEASE
     Route: 048
     Dates: start: 200909, end: 201602
  32. NEXIUM [Suspect]
     Active Substance: ESOMEPRAZOLE MAGNESIUM
     Indication: GASTROOESOPHAGEAL REFLUX DISEASE
     Route: 048
     Dates: start: 20160819
  33. NOVOLOG [Concomitant]
     Active Substance: INSULIN ASPART
  34. FLUZONE [Concomitant]
     Active Substance: INFLUENZA A VIRUS A/CALIFORNIA/7/2009 X-179A (H1N1) ANTIGEN (FORMALDEHYDE INACTIVATED)\INFLUENZA A VIRUS A/VICTORIA/210/2009 X-187 (H3N2) ANTIGEN (FORMALDEHYDE INACTIVATED)\INFLUENZA B VIRUS B/BRISBANE/60/2008 ANTIGEN (FORMALDEHYDE INACTIVATED)
  35. LISINOPRIL. [Concomitant]
     Active Substance: LISINOPRIL
  36. PREDNISONE. [Concomitant]
     Active Substance: PREDNISONE
  37. ATORVASTATIN [Concomitant]
     Active Substance: ATORVASTATIN
  38. QUETIAPINE FUMARATE. [Concomitant]
     Active Substance: QUETIAPINE FUMARATE
  39. SERTRALINE [Concomitant]
     Active Substance: SERTRALINE HYDROCHLORIDE
  40. CLINDAMYCIN. [Concomitant]
     Active Substance: CLINDAMYCIN
  41. CEPHALEXIN. [Concomitant]
     Active Substance: CEPHALEXIN
  42. NEXIUM [Suspect]
     Active Substance: ESOMEPRAZOLE MAGNESIUM
     Indication: GASTROOESOPHAGEAL REFLUX DISEASE
     Route: 048
     Dates: start: 20130501
  43. METFORMIN [Concomitant]
     Active Substance: METFORMIN HYDROCHLORIDE
  44. ZOLPIDEM [Concomitant]
     Active Substance: ZOLPIDEM TARTRATE
  45. DIAZEPAM. [Concomitant]
     Active Substance: DIAZEPAM
  46. OXYBUTYNIN. [Concomitant]
     Active Substance: OXYBUTYNIN CHLORIDE
  47. NEXIUM [Suspect]
     Active Substance: ESOMEPRAZOLE MAGNESIUM
     Indication: GASTROOESOPHAGEAL REFLUX DISEASE
     Route: 048
     Dates: start: 20130702
  48. CITALOPRAM [Concomitant]
     Active Substance: CITALOPRAM HYDROBROMIDE
  49. TOLTERODINE [Concomitant]
     Active Substance: TOLTERODINE
  50. MELOXICAM. [Concomitant]
     Active Substance: MELOXICAM

REACTIONS (2)
  - Chronic kidney disease [Not Recovered/Not Resolved]
  - Chronic kidney disease-mineral and bone disorder [Unknown]

NARRATIVE: CASE EVENT DATE: 2012
